FAERS Safety Report 23862101 (Version 2)
Quarter: 2024Q3

REPORT INFORMATION
  Report Type: Spontaneous
  Country: JP (occurrence: JP)
  Receive Date: 20240516
  Receipt Date: 20240801
  Transmission Date: 20241017
  Serious: Yes (Other)
  Sender: MERCK
  Company Number: JP-MSD-M2024-17337

PATIENT
  Age: 9 Decade
  Sex: Male

DRUGS (1)
  1. KEYTRUDA [Suspect]
     Active Substance: PEMBROLIZUMAB
     Indication: Hypopharyngeal cancer
     Dosage: 200 MILLIGRAM, Q3W
     Route: 041

REACTIONS (6)
  - Polychondritis [Unknown]
  - Productive cough [Unknown]
  - Chondropathy [Unknown]
  - Pharyngeal oedema [Unknown]
  - Pyrexia [Recovering/Resolving]
  - Cough [Recovering/Resolving]
